FAERS Safety Report 6612279-6 (Version None)
Quarter: 2010Q1

REPORT INFORMATION
  Report Type: 
  Country: None (occurrence: None)
  Receive Date: 20100303
  Receipt Date: 20100302
  Transmission Date: 20100710
  Serious: Yes (Other)
  Sender: FDA-Public Use
  Company Number: CHPA2009DE23924

PATIENT
  Age: 86 Year
  Sex: Male

DRUGS (1)
  1. LAMISIL CREAM [Suspect]
     Dosage: UNK, UNK
     Route: 061

REACTIONS (3)
  - BASAL CELL CARCINOMA [None]
  - SCAR [None]
  - SKIN NEOPLASM EXCISION [None]
